FAERS Safety Report 9310249 (Version 3)
Quarter: 2013Q4

REPORT INFORMATION
  Report Type: Report from Study
  Country: IN (occurrence: IN)
  Receive Date: 20130527
  Receipt Date: 20131113
  Transmission Date: 20140711
  Serious: Yes (Other)
  Sender: FDA-Public Use
  Company Number: PHHY2012IN019773

PATIENT
  Age: 40 Year
  Sex: Male

DRUGS (3)
  1. GLIVEC [Suspect]
     Indication: CHRONIC MYELOID LEUKAEMIA
     Dosage: 400 MG, DAILY
     Route: 048
  2. GLIVEC [Suspect]
     Dosage: 600 MG, DAILY
     Route: 048
  3. GLIVEC [Suspect]
     Dosage: 800 MG

REACTIONS (3)
  - Tuberculosis [Unknown]
  - Therapeutic response decreased [Unknown]
  - No therapeutic response [Unknown]
